FAERS Safety Report 5372523-2 (Version None)
Quarter: 2007Q2

REPORT INFORMATION
  Report Type: 
  Country: None (occurrence: None)
  Receive Date: 20070625
  Receipt Date: 20070612
  Transmission Date: 20071010
  Serious: Yes (Hospitalization)
  Sender: FDA-Public Use
  Company Number: 070612-0000594

PATIENT
  Age: 4 Day
  Sex: Male

DRUGS (1)
  1. NEOPROFEN [Suspect]
     Indication: PATENT DUCTUS ARTERIOSUS

REACTIONS (1)
  - WHITE BLOOD CELL COUNT DECREASED [None]
